FAERS Safety Report 9319855 (Version 1)
Quarter: 2013Q2

REPORT INFORMATION
  Report Type: Spontaneous
  Country: BR (occurrence: BR)
  Receive Date: 20130530
  Receipt Date: 20130530
  Transmission Date: 20140414
  Serious: Yes (Other)
  Sender: FDA-Public Use
  Company Number: BR-ASTRAZENECA-2013SE36999

PATIENT
  Age: 69 Year
  Sex: Male
  Weight: 83 kg

DRUGS (5)
  1. SYMBICORT TURBUHALER [Suspect]
     Indication: EMPHYSEMA
     Dosage: 320/9 MCG DAILY
     Route: 055
  2. ARADOIS [Concomitant]
     Indication: HYPERTENSION
     Dates: end: 201303
  3. ASA [Concomitant]
     Dates: end: 201303
  4. PREDNISONE [Concomitant]
     Indication: EMPHYSEMA
  5. SIMVASTATIN [Concomitant]
     Indication: BLOOD CHOLESTEROL INCREASED

REACTIONS (2)
  - Coronary artery occlusion [Not Recovered/Not Resolved]
  - Dyspnoea [Unknown]
